FAERS Safety Report 15433975 (Version 1)
Quarter: 2018Q3

REPORT INFORMATION
  Report Type: Spontaneous
  Country: US (occurrence: US)
  Receive Date: 20180927
  Receipt Date: 20180927
  Transmission Date: 20181010
  Serious: No
  Sender: FDA-Public Use
  Company Number: US-TAKEDA-2018MPI011624

PATIENT
  Sex: Male
  Weight: 68 kg

DRUGS (1)
  1. VELCADE [Suspect]
     Active Substance: BORTEZOMIB
     Indication: PLASMA CELL MYELOMA
     Dosage: UNK, 1/WEEK
     Route: 058
     Dates: start: 20180803

REACTIONS (5)
  - Middle insomnia [Unknown]
  - Injection site pain [Unknown]
  - Fatigue [Unknown]
  - Injection site erythema [Unknown]
  - Blood pressure increased [Unknown]
